FAERS Safety Report 8299491 (Version 14)
Quarter: 2012Q4

REPORT INFORMATION
  Report Type: 
  Country: JP (occurrence: JP)
  Receive Date: 20111219
  Receipt Date: 20120912
  Transmission Date: 20130627
  Serious: Yes (Hospitalization, Other)
  Sender: FDA-Public Use
  Company Number: GB-GILEAD-2011-0046835

PATIENT
  Age: 53 None
  Sex: Male

DRUGS (17)
  1. HEPSERA [Suspect]
     Indication: HEPATIC CIRRHOSIS
     Dosage: 5MG Per day
     Route: 048
     Dates: start: 20111102
  2. HEPSERA [Suspect]
     Dosage: 10MG Per day
     Route: 048
     Dates: start: 200605, end: 20111101
  3. ZEFIX [Suspect]
     Indication: HEPATIC CIRRHOSIS
     Dosage: 100MG Per day
     Route: 048
     Dates: start: 200101, end: 20111101
  4. ZEFIX [Suspect]
     Dosage: 50MG Per day
     Route: 048
     Dates: start: 20111102
  5. LIVACT                             /01504901/ [Concomitant]
     Dosage: 4IUAX Per day
     Route: 048
     Dates: start: 200005
  6. URSO                               /00465701/ [Concomitant]
     Dosage: 400MG Per day
     Route: 048
     Dates: start: 200005
  7. TAKEPRON [Concomitant]
     Dosage: 15MG Per day
     Route: 048
     Dates: start: 200703, end: 201009
  8. DIOVAN [Concomitant]
     Dosage: 80MG Per day
     Route: 048
     Dates: start: 201108
  9. FERROMIA                           /00023520/ [Concomitant]
     Dosage: 50MG Per day
     Route: 048
     Dates: start: 201003, end: 201009
  10. CHICORY [Concomitant]
     Dosage: 4IUAX per day
     Route: 048
     Dates: start: 200005
  11. BACOPA MONNIERI [Concomitant]
  12. EMBLICA OFFICINALIS [Concomitant]
  13. ANDROGRAPHIS PANICULATA [Concomitant]
  14. GINGER                             /01646602/ [Concomitant]
  15. CENTELLA ASIATICA [Concomitant]
     Dosage: 4IUAX per day
     Route: 048
     Dates: start: 200005
  16. TERMINALIA ARJUNA [Concomitant]
     Dosage: 4IUAX per day
     Route: 048
     Dates: start: 200005
  17. BOERHAVIA [Concomitant]
     Dosage: 4IUAX per day
     Route: 048
     Dates: start: 200005

REACTIONS (10)
  - Pancytopenia [Unknown]
  - Varices oesophageal [Unknown]
  - Angiodysplasia [Unknown]
  - Large intestinal haemorrhage [Unknown]
  - Splenomegaly [Unknown]
  - Anaemia [Unknown]
  - Renal impairment [Not Recovered/Not Resolved]
  - Glomerular filtration rate decreased [Unknown]
  - Blood creatinine increased [Unknown]
  - Renal impairment [Not Recovered/Not Resolved]
